FAERS Safety Report 9208669 (Version 1)
Quarter: 2013Q2

REPORT INFORMATION
  Report Type: Spontaneous
  Country: US (occurrence: None)
  Receive Date: 20130402
  Receipt Date: 20130402
  Transmission Date: 20140414
  Serious: No
  Sender: FDA-Public Use
  Company Number: None

PATIENT
  Age: 76 Year
  Sex: Male

DRUGS (2)
  1. STIVARGA 40 MG BAYER [Suspect]
     Indication: RECTAL CANCER
     Dosage: 4 TABS QD 21 DAYS PO
     Route: 048
     Dates: start: 20130305, end: 20130314
  2. STIVARGA 40 MG BAYER [Suspect]
     Indication: METASTASES TO LUNG
     Dosage: 4 TABS QD 21 DAYS PO
     Route: 048
     Dates: start: 20130305, end: 20130314

REACTIONS (6)
  - Nausea [None]
  - Dry mouth [None]
  - Abdominal distension [None]
  - Back pain [None]
  - Rash [None]
  - Rash [None]
